FAERS Safety Report 14104661 (Version 1)
Quarter: 2017Q4

REPORT INFORMATION
  Report Type: Spontaneous
  Country: DE (occurrence: DE)
  Receive Date: 20171018
  Receipt Date: 20171018
  Transmission Date: 20180321
  Serious: Yes (Hospitalization)
  Sender: FDA-Public Use
  Company Number: DE-BAYER-2017-192969

PATIENT
  Age: 55 Year
  Sex: Male

DRUGS (1)
  1. CIPROBAY [Suspect]
     Active Substance: CIPROFLOXACIN
     Dosage: UNK

REACTIONS (5)
  - Dyspnoea [None]
  - Nausea [None]
  - Renal impairment [None]
  - Tendon pain [None]
  - Panic attack [None]
